FAERS Safety Report 8780165 (Version 2)
Quarter: 2012Q4

REPORT INFORMATION
  Report Type: Spontaneous
  Country: DK (occurrence: None)
  Receive Date: 20120828
  Receipt Date: 20120905
  Transmission Date: 20130627
  Serious: Yes (Other)
  Sender: FDA-Public Use
  Company Number: 2012MA010393

PATIENT
  Sex: Female

DRUGS (5)
  1. DIAZEPAM [Suspect]
     Indication: BIPOLAR DISORDER
     Route: 048
     Dates: start: 2008
  2. LAMOTRIGINE [Suspect]
     Indication: BIPOLAR DISORDER
     Route: 048
     Dates: start: 2008
  3. LYRICA [Concomitant]
  4. XANOR [Concomitant]
  5. CYMBALTA [Concomitant]

REACTIONS (6)
  - Psychotic disorder [None]
  - Epilepsy [None]
  - Derealisation [None]
  - Drug dependence [None]
  - Muscle spasms [None]
  - Wrong technique in drug usage process [None]
